FAERS Safety Report 21510934 (Version 4)
Quarter: 2023Q2

REPORT INFORMATION
  Report Type: Report from Study
  Country: US (occurrence: US)
  Receive Date: 20221026
  Receipt Date: 20230515
  Transmission Date: 20230722
  Serious: Yes (Other)
  Sender: FDA-Public Use
  Company Number: US-ABBVIE-4176731

PATIENT
  Age: 47 Year
  Sex: Female

DRUGS (6)
  1. HUMIRA [Suspect]
     Active Substance: ADALIMUMAB
     Indication: Psoriatic arthropathy
     Route: 058
  2. HUMIRA [Suspect]
     Active Substance: ADALIMUMAB
     Route: 058
  3. HUMIRA [Suspect]
     Active Substance: ADALIMUMAB
     Route: 058
     Dates: start: 20230106
  4. HUMIRA [Suspect]
     Active Substance: ADALIMUMAB
     Route: 058
     Dates: start: 20220120, end: 202209
  5. MODERNA COVID-19 VACCINE [Concomitant]
     Active Substance: ELASOMERAN
     Indication: COVID-19 immunisation
     Dosage: ONE IN ONCE
     Route: 030
  6. MODERNA COVID-19 VACCINE [Concomitant]
     Active Substance: ELASOMERAN
     Indication: COVID-19 immunisation
     Dosage: ONE IN ONCE?BOOSTER DOSE
     Route: 030

REACTIONS (10)
  - Carpal tunnel syndrome [Unknown]
  - Tendon rupture [Unknown]
  - Spondylitis [Unknown]
  - Ligament sprain [Unknown]
  - Back disorder [Unknown]
  - Intervertebral disc degeneration [Unknown]
  - Lymphoedema [Unknown]
  - Back pain [Unknown]
  - Ligament rupture [Unknown]
  - Arthralgia [Unknown]

NARRATIVE: CASE EVENT DATE: 20220913
